FAERS Safety Report 9928145 (Version 1)
Quarter: 2014Q1

REPORT INFORMATION
  Report Type: Spontaneous
  Country: FR (occurrence: FR)
  Receive Date: 20140227
  Receipt Date: 20140227
  Transmission Date: 20141002
  Serious: Yes (Hospitalization)
  Sender: FDA-Public Use
  Company Number: FR-JNJFOC-20140211383

PATIENT
  Age: 48 Year
  Sex: Male

DRUGS (3)
  1. INTELENCE [Suspect]
     Indication: ANTIVIRAL TREATMENT
     Dosage: 2 TABLETS
     Route: 048
     Dates: start: 20090703
  2. ZIAGEN [Suspect]
     Indication: ANTIVIRAL TREATMENT
     Dosage: 1 TABLET
     Route: 048
     Dates: start: 2004
  3. ISENTRESS [Suspect]
     Indication: ANTIVIRAL TREATMENT
     Dosage: 1 TABLET
     Route: 048
     Dates: start: 20090730

REACTIONS (1)
  - Osteonecrosis [Not Recovered/Not Resolved]
